FAERS Safety Report 9694500 (Version 2)
Quarter: 2014Q2

REPORT INFORMATION
  Report Type: Spontaneous
  Country: US (occurrence: US)
  Receive Date: 20131118
  Receipt Date: 20140516
  Transmission Date: 20141212
  Serious: No
  Sender: FDA-Public Use
  Company Number: US-SA-2013SA105132

PATIENT
  Age: 7 Year
  Sex: Female

DRUGS (1)
  1. SKLICE [Suspect]
     Indication: LICE INFESTATION
     Dosage: 1 BOX
     Route: 065
     Dates: start: 20131008

REACTIONS (2)
  - Adverse event [Unknown]
  - Drug ineffective [Unknown]
